FAERS Safety Report 21300704 (Version 3)
Quarter: 2022Q4

REPORT INFORMATION
  Report Type: Spontaneous
  Country: CN (occurrence: CN)
  Receive Date: 20220907
  Receipt Date: 20221003
  Transmission Date: 20230112
  Serious: Yes (Other)
  Sender: FDA-Public Use
  Company Number: CN-BRISTOL-MYERS SQUIBB COMPANY-2022-100337

PATIENT
  Age: 52 Year
  Sex: Female
  Weight: 48 kg

DRUGS (6)
  1. OPDIVO [Suspect]
     Active Substance: NIVOLUMAB
     Indication: Oesophageal carcinoma
     Route: 041
     Dates: start: 20220727, end: 20220727
  2. PACLITAXEL [Suspect]
     Active Substance: PACLITAXEL
     Indication: Product used for unknown indication
     Route: 065
     Dates: start: 20220727, end: 20220802
  3. CISPLATIN [Suspect]
     Active Substance: CISPLATIN
     Indication: Product used for unknown indication
     Route: 065
     Dates: start: 20220727, end: 20220727
  4. SODIUM CHLORID BUFUS [Concomitant]
     Indication: Product used for unknown indication
     Dosage: 100ML ST INTRAVENOUSLY AS  IMMUNOTHERAPY
     Route: 065
     Dates: start: 20220727, end: 20220727
  5. SODIUM CHLORID BUFUS [Concomitant]
     Dosage: 500ML ST INTRAVENOUSLY AS CHEMOTHERAPY
     Route: 065
     Dates: start: 20220727, end: 20220727
  6. SODIUM CHLORID BUFUS [Concomitant]
     Dosage: 40ML ST INTRAVENOUSLY AS CHEMOTHERAPY
     Route: 065
     Dates: start: 20220727, end: 20220727

REACTIONS (1)
  - Full blood count decreased [Recovered/Resolved]

NARRATIVE: CASE EVENT DATE: 20220817
